FAERS Safety Report 4743668-2 (Version None)
Quarter: 2005Q3

REPORT INFORMATION
  Report Type: 
  Country: None (occurrence: None)
  Receive Date: 20050812
  Receipt Date: 20050729
  Transmission Date: 20060218
  Serious: Yes (Hospitalization)
  Sender: FDA-Public Use
  Company Number: JP-ABBOTT-05P-087-0307056-00

PATIENT
  Sex: Female
  Weight: 13.9 kg

DRUGS (4)
  1. CEFZON FINE GRANULES [Suspect]
     Indication: BRONCHOPNEUMONIA
     Route: 048
     Dates: start: 20050506, end: 20050508
  2. AZITHROMYCIN [Suspect]
     Indication: CHRONIC SINUSITIS
     Route: 048
     Dates: start: 20050416, end: 20050416
  3. AZITHROMYCIN [Suspect]
     Route: 048
     Dates: start: 20050423, end: 20050423
  4. AZITHROMYCIN [Suspect]
     Route: 048
     Dates: start: 20050430, end: 20050430

REACTIONS (5)
  - ALANINE AMINOTRANSFERASE INCREASED [None]
  - ASPARTATE AMINOTRANSFERASE INCREASED [None]
  - COUGH [None]
  - HEPATIC FUNCTION ABNORMAL [None]
  - PYREXIA [None]
